FAERS Safety Report 18188792 (Version 1)
Quarter: 2020Q3

REPORT INFORMATION
  Report Type: Spontaneous
  Country: CN (occurrence: CN)
  Receive Date: 20200825
  Receipt Date: 20200825
  Transmission Date: 20201103
  Serious: Yes (Other)
  Sender: FDA-Public Use
  Company Number: CN-ROCHE-2664128

PATIENT
  Age: 71 Year
  Sex: Male

DRUGS (2)
  1. CRIZOTINIB [Concomitant]
     Active Substance: CRIZOTINIB
     Indication: LUNG NEOPLASM MALIGNANT
     Route: 048
  2. ALECENSA [Suspect]
     Active Substance: ALECTINIB HYDROCHLORIDE
     Indication: LUNG NEOPLASM MALIGNANT
     Route: 048

REACTIONS (5)
  - Pain [Unknown]
  - Vomiting [Unknown]
  - Gastric ulcer [Unknown]
  - Abdominal discomfort [Unknown]
  - Gastric haemorrhage [Unknown]
